FAERS Safety Report 6261474-7 (Version None)
Quarter: 2009Q3

REPORT INFORMATION
  Report Type: 
  Country: None (occurrence: None)
  Receive Date: 20090709
  Receipt Date: 20090703
  Transmission Date: 20100115
  Serious: Yes (Other)
  Sender: FDA-Public Use
  Company Number: DE-BAYER-200922902GPV

PATIENT
  Age: 16 Year
  Sex: Female

DRUGS (1)
  1. MINISISTON 20 [Suspect]
     Indication: ORAL CONTRACEPTION
     Dosage: TOTAL DAILY DOSE: 1 DF
     Route: 048
     Dates: start: 20090301

REACTIONS (5)
  - DIPLOPIA [None]
  - DIZZINESS [None]
  - HEADACHE [None]
  - MIGRAINE [None]
  - TREMOR [None]
